FAERS Safety Report 4744637-9 (Version None)
Quarter: 2005Q3

REPORT INFORMATION
  Report Type: 
  Country: None (occurrence: None)
  Receive Date: 20050812
  Receipt Date: 20050812
  Transmission Date: 20060218
  Serious: Yes (Death)
  Sender: FDA-Public Use
  Company Number: None

PATIENT
  Age: 87 Year
  Sex: Female
  Weight: 55.3388 kg

DRUGS (2)
  1. SEROQUEL [Suspect]
     Indication: AGGRESSION
     Dosage: 25 MG   ONCE -NIGHT-  ORAL
     Route: 048
     Dates: start: 20050203, end: 20050204
  2. SEROQUEL [Suspect]
     Indication: DEMENTIA
     Dosage: 25 MG   ONCE -NIGHT-  ORAL
     Route: 048
     Dates: start: 20050203, end: 20050204

REACTIONS (6)
  - HYPOTENSION [None]
  - INTESTINAL GANGRENE [None]
  - LETHARGY [None]
  - OXYGEN SATURATION DECREASED [None]
  - RESPIRATORY DISTRESS [None]
  - SEPTIC SHOCK [None]
